FAERS Safety Report 7275357-7 (Version None)
Quarter: 2011Q1

REPORT INFORMATION
  Report Type: 
  Country: None (occurrence: None)
  Receive Date: 20110204
  Receipt Date: 20110131
  Transmission Date: 20110831
  Serious: Yes (Death, Hospitalization)
  Sender: FDA-Public Use
  Company Number: CA-ELI_LILLY_AND_COMPANY-CA201101007594

PATIENT
  Sex: Male

DRUGS (12)
  1. GLUCERNA [Concomitant]
  2. ATIVAN [Concomitant]
     Dosage: 0.5 MG, UNK
  3. LIPITOR [Concomitant]
     Dosage: 10 MG, UNK
  4. ZYPREXA [Suspect]
     Indication: BIPOLAR DISORDER
     Dosage: 2.5 MG, UNK
     Route: 048
  5. NEURONTIN [Concomitant]
     Dosage: 100 MG, UNK
  6. ZYPREXA [Suspect]
     Dosage: 2.5 MG, UNK
     Route: 060
  7. PAXIL [Concomitant]
     Dosage: 25 MG, UNK
  8. MONOPRIL [Concomitant]
     Dosage: 10 MG, UNK
  9. PANTOLOC                           /01263202/ [Concomitant]
     Dosage: 40 MG, UNK
  10. PHENAZO [Concomitant]
     Dosage: 200 MG, UNK
  11. ENABLEX                            /01760402/ [Concomitant]
     Dosage: 7.5 MG, UNK
  12. SENNA [Concomitant]
     Dosage: 8.6 MG, UNK

REACTIONS (4)
  - PANCREATIC CARCINOMA [None]
  - PANCREATIC OPERATION [None]
  - DIABETES MELLITUS [None]
  - HYPERGLYCAEMIA [None]
